FAERS Safety Report 7605974-3 (Version None)
Quarter: 2011Q3

REPORT INFORMATION
  Report Type: 
  Country: None (occurrence: None)
  Receive Date: 20110713
  Receipt Date: 20110630
  Transmission Date: 20111222
  Serious: Yes (Other)
  Sender: FDA-Public Use
  Company Number: PHHY2011CA59138

PATIENT
  Sex: Female

DRUGS (2)
  1. CALCITE [Concomitant]
     Dosage: 500 MG,BID
  2. ZOLEDRONOC ACID [Suspect]
     Indication: OSTEOPOROSIS
     Dosage: 5 MG/100 ML
     Route: 042
     Dates: start: 20110601

REACTIONS (5)
  - HEADACHE [None]
  - UPPER RESPIRATORY TRACT INFECTION [None]
  - ASTHENIA [None]
  - NAUSEA [None]
  - DRUG INTOLERANCE [None]
